FAERS Safety Report 4551907-6 (Version None)
Quarter: 2005Q1

REPORT INFORMATION
  Report Type: 
  Country: None (occurrence: None)
  Receive Date: 20050110
  Receipt Date: 20041228
  Transmission Date: 20050727
  Serious: Yes (Other)
  Sender: FDA-Public Use
  Company Number: 2005004630

PATIENT

DRUGS (2)
  1. HYDROCORTISONE [Suspect]
     Indication: URTICARIA
     Dosage: 100 MG, INTRAVENOUS
     Dates: start: 20041226
  2. STRONG NEO-MINOPHAGEN C (AMINOACETIC ACID, CYSTEINE, GLYCYRRHIZIC ACID [Suspect]
     Indication: URTICARIA
     Dosage: INTRAVENOUS
     Route: 042

REACTIONS (2)
  - ANAPHYLACTIC SHOCK [None]
  - CARDIAC ARREST [None]
